FAERS Safety Report 6572244-4 (Version None)
Quarter: 2010Q1

REPORT INFORMATION
  Report Type: 
  Country: None (occurrence: None)
  Receive Date: 20100201
  Receipt Date: 20100122
  Transmission Date: 20100710
  Serious: No
  Sender: FDA-Public Use
  Company Number: 2010000432

PATIENT
  Sex: Female

DRUGS (3)
  1. FENTORA [Suspect]
     Indication: BACK PAIN
     Dosage: BU
     Route: 002
  2. ACTIQ [Suspect]
     Indication: BACK PAIN
     Dosage: (600 MCG), BU
     Route: 002
  3. METHADONE HCL [Concomitant]

REACTIONS (1)
  - MEDICATION ERROR [None]
